FAERS Safety Report 24637411 (Version 1)
Quarter: 2024Q4

REPORT INFORMATION
  Report Type: Spontaneous
  Country: US (occurrence: US)
  Receive Date: 20241119
  Receipt Date: 20241119
  Transmission Date: 20250115
  Serious: Yes (Other)
  Sender: HIKMA
  Company Number: US-MLMSERVICE-20241030-PI243917-00272-1

PATIENT

DRUGS (2)
  1. PROGESTERONE [Suspect]
     Active Substance: PROGESTERONE
     Indication: Infertility
     Dosage: INTRAMUSCULAR PROGESTERONE IN SESAME OIL
     Route: 030
  2. SESAME OIL [Concomitant]
     Active Substance: SESAME OIL
     Indication: Product used for unknown indication
     Dosage: UNK
     Route: 030

REACTIONS (1)
  - Autoimmune dermatitis [Recovered/Resolved]
